FAERS Safety Report 5061769-9 (Version None)
Quarter: 2006Q3

REPORT INFORMATION
  Report Type: 
  Country: None (occurrence: None)
  Receive Date: 20060726
  Receipt Date: 20060405
  Transmission Date: 20061208
  Serious: No
  Sender: FDA-Public Use
  Company Number: US-GLAXOSMITHKLINE-A0600594A

PATIENT
  Age: 50 Year
  Sex: Female

DRUGS (5)
  1. DYAZIDE [Suspect]
     Dosage: 1CAP PER DAY
     Route: 048
  2. THYROID TAB [Concomitant]
  3. POTASSIUM CHLORIDE [Concomitant]
  4. PHYTO B [Concomitant]
  5. VITAMINS [Concomitant]

REACTIONS (2)
  - PHARMACEUTICAL PRODUCT COMPLAINT [None]
  - THERAPEUTIC RESPONSE DECREASED [None]
